APPROVED DRUG PRODUCT: CHLORDIAZEPOXIDE HYDROCHLORIDE
Active Ingredient: CHLORDIAZEPOXIDE HYDROCHLORIDE
Strength: 10MG
Dosage Form/Route: CAPSULE;ORAL
Application: A083742 | Product #001
Applicant: IVAX PHARMACEUTICALS INC SUB TEVA PHARMACEUTICALS USA
Approved: Approved Prior to Jan 1, 1982 | RLD: No | RS: No | Type: DISCN